FAERS Safety Report 5515185-3 (Version None)
Quarter: 2007Q4

REPORT INFORMATION
  Report Type: 
  Country: None (occurrence: None)
  Receive Date: 20071113
  Receipt Date: 20070131
  Transmission Date: 20080405
  Serious: No
  Sender: FDA-Public Use
  Company Number: A0637831A

PATIENT
  Sex: Male

DRUGS (1)
  1. COREG [Suspect]
     Indication: CARDIAC PACEMAKER INSERTION
     Dosage: 6.25MG TWICE PER DAY
     Route: 048
     Dates: start: 20060401

REACTIONS (3)
  - DIZZINESS [None]
  - PAIN [None]
  - VISUAL DISTURBANCE [None]
